FAERS Safety Report 10169243 (Version 1)
Quarter: 2014Q2

REPORT INFORMATION
  Report Type: Report from Study
  Country: JP (occurrence: JP)
  Receive Date: 20140513
  Receipt Date: 20140513
  Transmission Date: 20141212
  Serious: Yes (Hospitalization)
  Sender: FDA-Public Use
  Company Number: JP-ROCHE-1398692

PATIENT
  Age: 57 Year
  Sex: 0

DRUGS (3)
  1. BEVACIZUMAB [Suspect]
     Indication: COLON CANCER
     Route: 041
     Dates: start: 20140424, end: 20140424
  2. CAPECITABINE [Suspect]
     Indication: COLON CANCER
     Dosage: 2 WEEKS ADMINISTRATION FOLLOWED BY 1 WEEK REST
     Route: 048
     Dates: start: 20140424, end: 20140424
  3. CAMPTO [Concomitant]
     Indication: COLON CANCER
     Route: 041
     Dates: start: 20140424, end: 20140424

REACTIONS (1)
  - Cerebral haemorrhage [Not Recovered/Not Resolved]
